FAERS Safety Report 14342822 (Version 1)
Quarter: 2018Q1

REPORT INFORMATION
  Report Type: Spontaneous
  Country: HR (occurrence: HR)
  Receive Date: 20180102
  Receipt Date: 20180102
  Transmission Date: 20180509
  Serious: Yes (Other)
  Sender: FDA-Public Use
  Company Number: HR-PFIZER INC-2017554262

PATIENT
  Age: 71 Year
  Sex: Male
  Weight: 81 kg

DRUGS (6)
  1. CIPRINOL [Concomitant]
     Active Substance: CIPROFLOXACIN
     Dosage: 500 MG, UNK
     Route: 048
  2. DALNEVA [Concomitant]
     Dosage: 1 DF, UNK
     Route: 048
  3. CONTROLOC [Suspect]
     Active Substance: PANTOPRAZOLE SODIUM
     Indication: GASTRITIS
     Dosage: 20 MG, 1X/DAY
     Route: 048
     Dates: start: 20171006, end: 201711
  4. OMNIC [Concomitant]
     Active Substance: TAMSULOSIN HYDROCHLORIDE
     Dosage: 0.4 MG, UNK
     Route: 048
  5. ORMIDOL [Concomitant]
     Active Substance: ATENOLOL
     Dosage: 50 MG, UNK
     Route: 048
  6. TERTENSIF SR [Concomitant]
     Dosage: 1.5 MG, 1X/DAY
     Route: 048

REACTIONS (3)
  - Mouth swelling [Recovered/Resolved]
  - Hypersensitivity [Recovered/Resolved]
  - Swelling face [Recovered/Resolved]

NARRATIVE: CASE EVENT DATE: 20171026
